FAERS Safety Report 10505743 (Version 6)
Quarter: 2016Q1

REPORT INFORMATION
  Report Type: Spontaneous
  Country: JP (occurrence: JP)
  Receive Date: 20141008
  Receipt Date: 20160225
  Transmission Date: 20160525
  Serious: Yes (Hospitalization, Other)
  Sender: FDA-Public Use
  Company Number: JP-TAKEDA-2014TUS009687

PATIENT
  Age: 71 Year
  Sex: Male
  Weight: 61 kg

DRUGS (11)
  1. NEXIUM [Suspect]
     Active Substance: ESOMEPRAZOLE MAGNESIUM
     Indication: DUODENAL ULCER
     Dosage: 20 MG, QD
     Route: 048
  2. BAYASPIRIN [Suspect]
     Active Substance: ASPIRIN
     Indication: ANGINA PECTORIS
     Dosage: 100 MG, QD
     Route: 048
     Dates: start: 20151218
  3. EFIENT [Suspect]
     Active Substance: PRASUGREL HYDROCHLORIDE
     Indication: CEREBRAL THROMBOSIS
     Dosage: 3.75 MG, QD
     Route: 048
     Dates: start: 20151218
  4. SEIBULE [Suspect]
     Active Substance: MIGLITOL
     Indication: TYPE 2 DIABETES MELLITUS
     Dosage: 50 MG, BID
     Route: 048
  5. AMLODIN OD [Suspect]
     Active Substance: AMLODIPINE BESYLATE
     Indication: HYPERTENSION
     Dosage: 5 MG, QD
     Route: 048
  6. NESINA [Suspect]
     Active Substance: ALOGLIPTIN BENZOATE
     Indication: TYPE 2 DIABETES MELLITUS
     Dosage: 25 MG, QD
     Route: 048
  7. CRESTOR [Suspect]
     Active Substance: ROSUVASTATIN CALCIUM
     Indication: DYSLIPIDAEMIA
     Dosage: 2.5 MG, QD
     Route: 048
     Dates: start: 20160114
  8. FEBURIC [Suspect]
     Active Substance: FEBUXOSTAT
     Indication: HYPERURICAEMIA
     Dosage: 20 MG, QD
     Route: 048
  9. CO-DIO [Suspect]
     Active Substance: HYDROCHLOROTHIAZIDE\VALSARTAN
     Indication: HYPERTENSION
     Dosage: 1 DF, QD
     Route: 048
  10. NICORANDIL [Suspect]
     Active Substance: NICORANDIL
     Indication: ANGINA PECTORIS
     Dosage: 5 MG, TID
     Route: 048
     Dates: start: 20160114
  11. AMARYL [Suspect]
     Active Substance: GLIMEPIRIDE
     Indication: TYPE 2 DIABETES MELLITUS
     Dosage: 0.5 MG, QD
     Route: 048

REACTIONS (3)
  - Duodenal ulcer haemorrhage [Recovering/Resolving]
  - Atrioventricular block complete [Recovered/Resolved]
  - Coronary artery stenosis [Recovered/Resolved]

NARRATIVE: CASE EVENT DATE: 20140925
